FAERS Safety Report 21694951 (Version 1)
Quarter: 2022Q4

REPORT INFORMATION
  Report Type: Spontaneous
  Country: US (occurrence: None)
  Receive Date: 20221207
  Receipt Date: 20221207
  Transmission Date: 20230113
  Serious: Yes (Disabling)
  Sender: FDA-Public Use
  Company Number: None

PATIENT
  Age: 45 Year
  Sex: Female
  Weight: 51.75 kg

DRUGS (7)
  1. OZEMPIC [Suspect]
     Active Substance: SEMAGLUTIDE
     Indication: Diabetes mellitus
     Dosage: OTHER QUANTITY : 0.25 MG;?OTHER FREQUENCY : WEEKLY;?
     Route: 058
     Dates: start: 20211221
  2. OZEMPIC [Suspect]
     Active Substance: SEMAGLUTIDE
     Indication: Weight decreased
  3. INSULIN NOS [Concomitant]
     Active Substance: INSULIN NOS
  4. Aspart [Concomitant]
  5. LIPITOR [Concomitant]
     Active Substance: ATORVASTATIN CALCIUM
  6. ZONISAMIDE [Concomitant]
     Active Substance: ZONISAMIDE
  7. VITAMINS [Concomitant]
     Active Substance: VITAMINS

REACTIONS (7)
  - Diarrhoea [None]
  - Vomiting [None]
  - Gastroenteritis viral [None]
  - Ejection fraction decreased [None]
  - Gallbladder volvulus [None]
  - Cholecystitis [None]
  - Adhesion [None]

NARRATIVE: CASE EVENT DATE: 20220917
